FAERS Safety Report 21258401 (Version 1)
Quarter: 2022Q3

REPORT INFORMATION
  Report Type: Report from Study
  Country: US (occurrence: US)
  Receive Date: 20220826
  Receipt Date: 20220826
  Transmission Date: 20221027
  Serious: Yes (Death, Hospitalization)
  Sender: FDA-Public Use
  Company Number: US-Accord-274902

PATIENT
  Sex: Female
  Weight: 55.07 kg

DRUGS (1)
  1. CLOZAPINE [Suspect]
     Active Substance: CLOZAPINE
     Indication: Schizoaffective disorder
     Dosage: 50 MG DAILY AND 75 MG BY MOUTH EVERY EVENING

REACTIONS (1)
  - Multiple organ dysfunction syndrome [Fatal]
